FAERS Safety Report 7365122-4 (Version None)
Quarter: 2011Q1

REPORT INFORMATION
  Report Type: 
  Country: None (occurrence: None)
  Receive Date: 20110321
  Receipt Date: 20110319
  Transmission Date: 20110831
  Serious: Yes (Other)
  Sender: FDA-Public Use
  Company Number: US-PFIZER INC-2011060568

PATIENT
  Sex: Male
  Weight: 69.4 kg

DRUGS (1)
  1. CHANTIX [Suspect]
     Indication: SMOKING CESSATION THERAPY
     Dosage: 0.5 MG, DAILY
     Dates: start: 20110316, end: 20110319

REACTIONS (5)
  - PANIC REACTION [None]
  - CONFUSIONAL STATE [None]
  - NERVOUSNESS [None]
  - ANXIETY [None]
  - TREMOR [None]
